FAERS Safety Report 26002416 (Version 2)
Quarter: 2025Q4

REPORT INFORMATION
  Report Type: Spontaneous
  Country: JP (occurrence: JP)
  Receive Date: 20251105
  Receipt Date: 20251204
  Transmission Date: 20260118
  Serious: Yes (Death, Other)
  Sender: JAZZ
  Company Number: JP-JAZZ PHARMACEUTICALS-2025-JP-024353

PATIENT
  Age: 8 Decade

DRUGS (4)
  1. VYXEOS [Suspect]
     Active Substance: CYTARABINE\DAUNORUBICIN
     Indication: Acute myeloid leukaemia
     Dosage: UNK
     Dates: start: 20250930, end: 20251004
  2. CYTARABINE [Suspect]
     Active Substance: CYTARABINE
     Indication: Acute myeloid leukaemia
  3. AZACITIDINE [Suspect]
     Active Substance: AZACITIDINE
     Indication: Myelodysplastic syndrome
  4. VENETOCLAX [Suspect]
     Active Substance: VENETOCLAX
     Indication: Acute myeloid leukaemia

REACTIONS (2)
  - Acute myeloid leukaemia [Fatal]
  - Neutropenia [Recovering/Resolving]

NARRATIVE: CASE EVENT DATE: 20251001
